FAERS Safety Report 9388111 (Version 1)
Quarter: 2013Q3

REPORT INFORMATION
  Report Type: Spontaneous
  Country: US (occurrence: US)
  Receive Date: 20130708
  Receipt Date: 20130708
  Transmission Date: 20140515
  Serious: No
  Sender: FDA-Public Use
  Company Number: US-ASTRAZENECA-2013SE46914

PATIENT
  Age: 588 Month
  Sex: Male
  Weight: 90.7 kg

DRUGS (2)
  1. SEROQUEL XR [Suspect]
     Indication: ANXIETY
     Route: 048
     Dates: start: 20130605
  2. SEROQUEL XR [Suspect]
     Indication: DEPRESSION
     Route: 048
     Dates: start: 20130605

REACTIONS (3)
  - Hyperhidrosis [Unknown]
  - Heat exhaustion [Unknown]
  - Impaired work ability [Unknown]
